FAERS Safety Report 9194119 (Version 1)
Quarter: 2013Q1

REPORT INFORMATION
  Report Type: Spontaneous
  Country: US (occurrence: US)
  Receive Date: 20130327
  Receipt Date: 20130327
  Transmission Date: 20140127
  Serious: Yes (Hospitalization, Other)
  Sender: FDA-Public Use
  Company Number: US-WATSON-2013-04942

PATIENT
  Age: 28 Year
  Sex: Female

DRUGS (3)
  1. DISULFIRAM [Suspect]
     Indication: ALCOHOLISM
     Dosage: 500 MG, DAILY
     Route: 065
  2. ORTHO-NOVUM 1/50 [Concomitant]
     Indication: ORAL CONTRACEPTION
     Dosage: UNK
     Route: 048
  3. MONISTAT [Concomitant]
     Indication: VULVOVAGINAL CANDIDIASIS
     Dosage: UNK
     Route: 065

REACTIONS (12)
  - Delusion of replacement [Recovered/Resolved]
  - Grand mal convulsion [Recovered/Resolved]
  - Electroencephalogram abnormal [Recovered/Resolved]
  - Psychotic disorder [None]
  - Abnormal behaviour [None]
  - Affect lability [None]
  - Heart rate increased [None]
  - Respiratory rate increased [None]
  - Aspartate aminotransferase increased [None]
  - Red blood cell sedimentation rate increased [None]
  - Emotional disorder [None]
  - Cognitive disorder [None]
